FAERS Safety Report 9566707 (Version 1)
Quarter: 2013Q3

REPORT INFORMATION
  Report Type: Spontaneous
  Country: US (occurrence: US)
  Receive Date: 20130930
  Receipt Date: 20130930
  Transmission Date: 20140515
  Serious: No
  Sender: FDA-Public Use
  Company Number: US-AMGEN-USASP2012061851

PATIENT
  Age: 74 Year
  Sex: Female

DRUGS (12)
  1. ENBREL [Suspect]
     Indication: PRODUCT USED FOR UNKNOWN INDICATION
     Dosage: 25 MG, 2 TIMES/WK
     Route: 058
  2. COLACE [Concomitant]
     Dosage: 50 MG, UNK
  3. ASPIRIN [Concomitant]
     Dosage: 81 MG, UNK
  4. LEVOTHYROXIN [Concomitant]
     Dosage: 25 MCG
  5. CALCIUM D                          /00944201/ [Concomitant]
     Dosage: UNK
  6. CARBAMAZEPIN [Concomitant]
     Dosage: 200 MG, UNK
  7. METOPROLOL [Concomitant]
     Dosage: 25 MG
  8. NORVASC [Concomitant]
     Dosage: 5 MG, UNK
  9. PRILOSEC                           /00661201/ [Concomitant]
     Dosage: 10 MG, UNK
  10. TEMAZEPAM [Concomitant]
     Dosage: 15 MG, UNK
  11. METFORMIN [Concomitant]
     Dosage: 500 MG, UNK
  12. MULTIVITAMINS, PLAIN [Concomitant]
     Dosage: UNK

REACTIONS (2)
  - Thyroid disorder [Unknown]
  - Therapeutic response decreased [Unknown]
